FAERS Safety Report 23001612 (Version 2)
Quarter: 2025Q4

REPORT INFORMATION
  Report Type: Report from Study
  Country: US (occurrence: US)
  Receive Date: 20230928
  Receipt Date: 20251211
  Transmission Date: 20260117
  Serious: Yes (Other)
  Sender: INCYTE
  Company Number: US-INCYTE CORPORATION-2023IN010018

PATIENT
  Age: 85 Year

DRUGS (3)
  1. JAKAFI [Suspect]
     Active Substance: RUXOLITINIB
     Indication: Lung neoplasm malignant
     Dosage: 10 MILLIGRAM, BID
  2. JAKAFI [Suspect]
     Active Substance: RUXOLITINIB
     Indication: Myelofibrosis
     Dosage: 10 MILLIGRAM, BID
  3. TRAMADOL [Concomitant]
     Active Substance: TRAMADOL
     Indication: Product used for unknown indication
     Dosage: UNK
     Route: 065

REACTIONS (10)
  - Craniofacial fracture [Unknown]
  - Cardiac disorder [Unknown]
  - Fall [Unknown]
  - Rib fracture [Unknown]
  - Hand fracture [Unknown]
  - Eye contusion [Unknown]
  - Contusion [Unknown]
  - Breast mass [Unknown]
  - Pain [Unknown]
  - Off label use [Unknown]
